FAERS Safety Report 19771516 (Version 1)
Quarter: 2021Q3

REPORT INFORMATION
  Report Type: Spontaneous
  Country: US (occurrence: US)
  Receive Date: 20210901
  Receipt Date: 20210901
  Transmission Date: 20211014
  Serious: Yes (Hospitalization)
  Sender: FDA-Public Use
  Company Number: None

PATIENT
  Age: 38 Year
  Sex: Female
  Weight: 70.65 kg

DRUGS (1)
  1. DEXAMETHASONE ACETATE [Suspect]
     Active Substance: DEXAMETHASONE ACETATE
     Indication: PRODUCT USED FOR UNKNOWN INDICATION
     Dates: start: 20210827, end: 20210827

REACTIONS (6)
  - Pain [None]
  - Hypersensitivity [None]
  - Vision blurred [None]
  - Fall [None]
  - Rash [None]
  - Dry mouth [None]

NARRATIVE: CASE EVENT DATE: 20210827
